FAERS Safety Report 5060620-0 (Version None)
Quarter: 2006Q3

REPORT INFORMATION
  Report Type: 
  Country: None (occurrence: None)
  Receive Date: 20060720
  Receipt Date: 20060720
  Transmission Date: 20061208
  Serious: Yes (Hospitalization)
  Sender: FDA-Public Use
  Company Number: None

PATIENT
  Age: 57 Year
  Sex: Female
  Weight: 96.1626 kg

DRUGS (11)
  1. AMOXICILLIN [Suspect]
     Indication: PLEURAL EFFUSION
     Dosage: 500 MG TID PO
     Route: 048
     Dates: start: 20060615, end: 20060622
  2. LEVOFLOXACIN [Suspect]
     Indication: PLEURAL EFFUSION
     Dosage: 750 MG QD PO
     Route: 048
     Dates: start: 20060615, end: 20060622
  3. ALENDRONATE SODIUM [Concomitant]
  4. AMIODARONE HCL [Concomitant]
  5. ASPIRIN [Concomitant]
  6. LEVOTHYROXINE SODIUM [Concomitant]
  7. LOSARTAN POSTASSIUM [Concomitant]
  8. MAGNESIUM OXIDE [Concomitant]
  9. POTASSIUM CHLORIDE [Concomitant]
  10. SERTRALINE [Concomitant]
  11. SIMVASTATIN [Concomitant]

REACTIONS (1)
  - CLOSTRIDIUM DIFFICILE COLITIS [None]
